FAERS Safety Report 8915379 (Version 1)
Quarter: 2012Q4

REPORT INFORMATION
  Report Type: Report from Study
  Country: PL (occurrence: PL)
  Receive Date: 20121119
  Receipt Date: 20121119
  Transmission Date: 20130627
  Serious: Yes (Death, Other)
  Sender: FDA-Public Use
  Company Number: PL-ASTRAZENECA-2012SE85873

PATIENT
  Age: 41 Year
  Sex: Male

DRUGS (1)
  1. ZD6474 [Suspect]
     Indication: THYROID CANCER
     Route: 048
     Dates: start: 201002

REACTIONS (4)
  - Cushing^s syndrome [Unknown]
  - Muscular weakness [None]
  - Oral candidiasis [None]
  - Soft tissue infection [None]
